FAERS Safety Report 5726661-2 (Version None)
Quarter: 2008Q2

REPORT INFORMATION
  Report Type: 
  Country: None (occurrence: None)
  Receive Date: 20080502
  Receipt Date: 20071203
  Transmission Date: 20081010
  Serious: Yes (Other)
  Sender: FDA-Public Use
  Company Number: JP-PFIZER INC-2008037502

PATIENT
  Age: 77 Year
  Sex: Male

DRUGS (1)
  1. MIGLITOL TABLET [Suspect]
     Dosage: DAILY DOSE:75MG
     Route: 048
     Dates: start: 20071114, end: 20071130

REACTIONS (3)
  - EYELID OEDEMA [None]
  - HYPERTENSION [None]
  - OEDEMA PERIPHERAL [None]
